FAERS Safety Report 8456472-9 (Version None)
Quarter: 2012Q2

REPORT INFORMATION
  Report Type: 
  Country: None (occurrence: None)
  Receive Date: 20120621
  Receipt Date: 20120615
  Transmission Date: 20120825
  Serious: Yes (Death, Other)
  Sender: FDA-Public Use
  Company Number: US-GILEAD-2012-0056231

PATIENT
  Age: 30 Year
  Sex: Female

DRUGS (5)
  1. NORVIR [Concomitant]
     Indication: HIV INFECTION
     Dosage: 100 MG, QD
     Route: 048
     Dates: start: 20111031
  2. EMTRICITABINE/TENOFOVIR DISOPROXIL FUMARATE [Suspect]
     Indication: HIV INFECTION
     Dosage: 1 DF, QD
     Route: 048
     Dates: start: 20111031
  3. REYATAZ [Concomitant]
     Dosage: 300 MG, QD
     Route: 048
     Dates: start: 20111031, end: 20120115
  4. REYATAZ [Concomitant]
     Dosage: 400 UNK, UNK
     Route: 048
     Dates: start: 20120115, end: 20120503
  5. REYATAZ [Concomitant]
     Indication: HIV INFECTION
     Dosage: 300 UNK, UNK
     Route: 048
     Dates: start: 20120504

REACTIONS (2)
  - STILLBIRTH [None]
  - GESTATIONAL DIABETES [None]
